FAERS Safety Report 10818519 (Version 1)
Quarter: 2015Q1

REPORT INFORMATION
  Report Type: Report from Study
  Country: US (occurrence: None)
  Receive Date: 20150213
  Receipt Date: 20150213
  Transmission Date: 20150721
  Serious: Yes (Hospitalization, Other)
  Sender: FDA-Public Use
  Company Number: 2015BI002895

PATIENT
  Age: 69 Year
  Sex: Female
  Weight: 61.4 kg

DRUGS (17)
  1. ASPIRIN. [Concomitant]
     Active Substance: ASPIRIN
  2. IBUPROFEN. [Concomitant]
     Active Substance: IBUPROFEN
  3. DULOXETINE [Concomitant]
     Active Substance: DULOXETINE
  4. GABAPENTIN. [Concomitant]
     Active Substance: GABAPENTIN
  5. HYDROCODONE/ACETAMINOPHEN [Concomitant]
     Active Substance: ACETAMINOPHEN\HYDROCODONE
  6. SALINE [Concomitant]
     Active Substance: SODIUM CHLORIDE
  7. BLACK CURRANT SEED OIL [Concomitant]
  8. CALCIUM CARBONATE-VITAMIN D [Concomitant]
     Active Substance: CALCIUM CARBONATE\VITAMIN D
  9. TRAMADOL [Concomitant]
     Active Substance: TRAMADOL
  10. TYSABRI [Suspect]
     Active Substance: NATALIZUMAB
     Indication: PRIMARY PROGRESSIVE MULTIPLE SCLEROSIS
     Route: 042
     Dates: start: 20120928, end: 20141106
  11. FENTANYL. [Concomitant]
     Active Substance: FENTANYL
  12. MELATONIN-PYRIDOXINE [Concomitant]
  13. OXYBUTYNIN [Concomitant]
     Active Substance: OXYBUTYNIN
  14. VOLTAREN [Concomitant]
     Active Substance: DICLOFENAC SODIUM
  15. LEVOTHYROXINE [Concomitant]
     Active Substance: LEVOTHYROXINE
  16. SYSTANE (HYPROMELLOSE 2910 (4000 MPA.S)) [Concomitant]
     Active Substance: HYPROMELLOSE 2910 (4000 MPA.S)
  17. ACETAMINOPHEN. [Concomitant]
     Active Substance: ACETAMINOPHEN

REACTIONS (8)
  - Diarrhoea [None]
  - Musculoskeletal pain [None]
  - Asthenia [None]
  - Fall [None]
  - Lower limb fracture [None]
  - Flank pain [None]
  - Pancreatic carcinoma metastatic [None]
  - Off label use [None]

NARRATIVE: CASE EVENT DATE: 20141201
